FAERS Safety Report 12674611 (Version 1)
Quarter: 2016Q3

REPORT INFORMATION
  Report Type: Spontaneous
  Country: US (occurrence: US)
  Receive Date: 20160823
  Receipt Date: 20160823
  Transmission Date: 20161109
  Serious: No
  Sender: FDA-Public Use
  Company Number: US-FRI-1000083944

PATIENT
  Sex: Male

DRUGS (5)
  1. SAPHRIS [Suspect]
     Active Substance: ASENAPINE MALEATE
     Indication: DEPRESSION
     Dosage: 5 MG
     Route: 048
     Dates: start: 2014, end: 2014
  2. SAPHRIS [Suspect]
     Active Substance: ASENAPINE MALEATE
     Dosage: 5 MG
     Route: 048
     Dates: start: 2014, end: 201601
  3. SAPHRIS [Suspect]
     Active Substance: ASENAPINE MALEATE
     Dosage: PIECES OF TABLET
     Route: 048
     Dates: start: 201601
  4. COUMADIN [Concomitant]
     Active Substance: WARFARIN SODIUM
     Indication: COAGULOPATHY
  5. SAPHRIS [Suspect]
     Active Substance: ASENAPINE MALEATE
     Dosage: 15 MG
     Route: 048
     Dates: start: 2014, end: 2014

REACTIONS (9)
  - Intentional product misuse [Recovered/Resolved]
  - Dizziness [Recovered/Resolved]
  - Drug effect decreased [Recovered/Resolved]
  - Intentional product misuse [Not Recovered/Not Resolved]
  - Euphoric mood [Recovered/Resolved]
  - Hypoaesthesia [Recovered/Resolved]
  - Malaise [Recovered/Resolved]
  - Off label use [Not Recovered/Not Resolved]
  - Nausea [Recovered/Resolved]

NARRATIVE: CASE EVENT DATE: 2014
